FAERS Safety Report 20973135 (Version 1)
Quarter: 2022Q2

REPORT INFORMATION
  Report Type: Spontaneous
  Country: US (occurrence: None)
  Receive Date: 20220617
  Receipt Date: 20220617
  Transmission Date: 20220720
  Serious: Yes (Other)
  Sender: FDA-Public Use
  Company Number: US-Hikma Pharmaceuticals USA Inc.-US-H14001-22-01572

PATIENT
  Age: 21 Year
  Weight: 48.2 kg

DRUGS (4)
  1. OXYCODONE [Suspect]
     Active Substance: OXYCODONE
     Indication: Pain
     Dosage: UNKNOWN
     Route: 048
  2. HYDROMORPHONE [Suspect]
     Active Substance: HYDROMORPHONE
     Indication: Pain
     Dosage: UNKNOWN
     Route: 048
  3. MORPHINE [Suspect]
     Active Substance: MORPHINE
     Indication: Pain management
     Dosage: UNKNOWN
     Route: 042
     Dates: start: 20220506
  4. MORPHINE [Suspect]
     Active Substance: MORPHINE
     Dosage: UNKNOWN
     Dates: start: 20220506

REACTIONS (3)
  - Urinary retention [Unknown]
  - Constipation [Unknown]
  - Drug ineffective [Unknown]
